FAERS Safety Report 7816565-3 (Version None)
Quarter: 2011Q4

REPORT INFORMATION
  Report Type: 
  Country: None (occurrence: None)
  Receive Date: 20111017
  Receipt Date: 20111013
  Transmission Date: 20120403
  Serious: Yes (Life-Threatening, Hospitalization, Other)
  Sender: FDA-Public Use
  Company Number: FR-PFIZER INC-2011127260

PATIENT
  Age: 36 Year
  Sex: Male

DRUGS (2)
  1. PREDNISONE [Suspect]
     Indication: THROMBOCYTOPENIC PURPURA
     Dosage: UNK
     Dates: start: 20081101
  2. SOLU-MEDROL [Suspect]
     Indication: THROMBOCYTOPENIC PURPURA
     Dosage: UNK
     Dates: start: 20081124

REACTIONS (9)
  - COMA [None]
  - GAIT DISTURBANCE [None]
  - MUSCLE RUPTURE [None]
  - HYPOKINESIA [None]
  - EPILEPSY [None]
  - ACTIVITIES OF DAILY LIVING IMPAIRED [None]
  - THROMBOCYTOPENIC PURPURA [None]
  - MYOPATHY [None]
  - BACK PAIN [None]
